FAERS Safety Report 4388675-7 (Version None)
Quarter: 2004Q2

REPORT INFORMATION
  Report Type: 
  Country: None (occurrence: None)
  Receive Date: 20040624
  Receipt Date: 20040618
  Transmission Date: 20050107
  Serious: Yes (Other)
  Sender: FDA-Public Use
  Company Number: 002#4#2004-00138

PATIENT
  Age: 13 Year

DRUGS (4)
  1. REGLAN [Suspect]
  2. FEXOFENADINE HCL [Suspect]
  3. ACETAMINOPHEN [Suspect]
  4. TRAMADOL [Suspect]

REACTIONS (3)
  - ELECTROCARDIOGRAM QT PROLONGED [None]
  - OVERDOSE [None]
  - SUICIDE ATTEMPT [None]
